FAERS Safety Report 9569141 (Version 1)
Quarter: 2013Q3

REPORT INFORMATION
  Report Type: Spontaneous
  Country: US (occurrence: US)
  Receive Date: 20130930
  Receipt Date: 20130930
  Transmission Date: 20140515
  Serious: No
  Sender: FDA-Public Use
  Company Number: US-AMGEN-USASP2013058976

PATIENT
  Age: 34 Year
  Sex: Male
  Weight: 113.38 kg

DRUGS (2)
  1. ENBREL [Suspect]
     Indication: PRODUCT USED FOR UNKNOWN INDICATION
     Dosage: 50 MG, QWK
     Route: 058
     Dates: end: 2013
  2. NAPROXEN [Concomitant]
     Dosage: 250 MG, UNK

REACTIONS (2)
  - Drug ineffective [Recovered/Resolved]
  - Back pain [Recovered/Resolved]
